FAERS Safety Report 6042413-0 (Version None)
Quarter: 2009Q1

REPORT INFORMATION
  Report Type: 
  Country: None (occurrence: None)
  Receive Date: 20090116
  Receipt Date: 20090106
  Transmission Date: 20090719
  Serious: Yes (Other)
  Sender: FDA-Public Use
  Company Number: US-PFIZER INC-2007062053

PATIENT
  Sex: Female
  Weight: 66.667 kg

DRUGS (3)
  1. LIPITOR [Suspect]
     Indication: BLOOD CHOLESTEROL INCREASED
     Dosage: 10 MG, 1X/DAY
     Route: 048
     Dates: start: 19970101
  2. LIPITOR [Suspect]
     Dosage: 20 MG, 1X/DAY
     Dates: start: 20030101
  3. PROTONIX [Concomitant]
     Dosage: UNK

REACTIONS (18)
  - ARTHRALGIA [None]
  - BURSITIS [None]
  - CHEST DISCOMFORT [None]
  - DRUG INEFFECTIVE [None]
  - ENDOMETRIAL HYPERTROPHY [None]
  - FATIGUE [None]
  - INSOMNIA [None]
  - JOINT INJURY [None]
  - MUSCLE DISORDER [None]
  - MUSCLE SPASMS [None]
  - MUSCULAR WEAKNESS [None]
  - MUSCULOSKELETAL PAIN [None]
  - MYALGIA [None]
  - PAIN IN EXTREMITY [None]
  - SOMNOLENCE [None]
  - TENDON RUPTURE [None]
  - UTERINE CANCER [None]
  - UTERINE LEIOMYOMA [None]
